FAERS Safety Report 4425041-X (Version None)
Quarter: 2004Q3

REPORT INFORMATION
  Report Type: 
  Country: None (occurrence: None)
  Receive Date: 20040813
  Receipt Date: 20040723
  Transmission Date: 20050211
  Serious: Yes (Other)
  Sender: FDA-Public Use
  Company Number: 200415583US

PATIENT
  Age: 66 Year
  Sex: Female

DRUGS (4)
  1. ARAVA [Suspect]
     Indication: RHEUMATOID ARTHRITIS
     Dates: end: 20040701
  2. MULTI-VITAMINS [Concomitant]
     Dosage: DOSE: UNK
  3. CALTRATE [Concomitant]
     Dosage: DOSE: UNK
  4. IBUPROFEN [Concomitant]
     Dosage: DOSE: UNK

REACTIONS (9)
  - DIARRHOEA [None]
  - DIZZINESS [None]
  - LOSS OF CONSCIOUSNESS [None]
  - NERVOUSNESS [None]
  - PALLOR [None]
  - RHINORRHOEA [None]
  - SYNCOPE [None]
  - TREMOR [None]
  - WEIGHT DECREASED [None]
